FAERS Safety Report 4766212-2 (Version None)
Quarter: 2005Q3

REPORT INFORMATION
  Report Type: 
  Country: None (occurrence: None)
  Receive Date: 20050912
  Receipt Date: 20050511
  Transmission Date: 20060218
  Serious: Yes (Other)
  Sender: FDA-Public Use
  Company Number: US-MERCK-0505USA01787

PATIENT
  Age: 61 Year
  Sex: Female
  Weight: 61 kg

DRUGS (3)
  1. VIOXX [Suspect]
     Indication: OSTEOARTHRITIS
     Route: 048
     Dates: start: 20010901, end: 20040901
  2. DYAZIDE [Concomitant]
     Indication: OEDEMA PERIPHERAL
     Route: 065
     Dates: start: 19900101
  3. CELEBREX [Concomitant]
     Route: 065
     Dates: start: 20010101

REACTIONS (2)
  - CARDIAC DISORDER [None]
  - MYOCARDIAL INFARCTION [None]
